FAERS Safety Report 6268942-2 (Version None)
Quarter: 2009Q3

REPORT INFORMATION
  Report Type: 
  Country: None (occurrence: None)
  Receive Date: 20090715
  Receipt Date: 20090713
  Transmission Date: 20100115
  Serious: Yes (Other)
  Sender: FDA-Public Use
  Company Number: US-RB-017141-09

PATIENT
  Age: 43 Year
  Sex: Male

DRUGS (4)
  1. SUBOXONE [Suspect]
     Route: 060
     Dates: start: 20090615
  2. PROZAC [Concomitant]
     Indication: DEPRESSION
     Route: 065
     Dates: end: 20090615
  3. CATAPRES [Concomitant]
     Indication: HYPERTENSION
     Route: 065
  4. LEXAPRO [Concomitant]
     Indication: DEPRESSION
     Route: 065
     Dates: end: 20090615

REACTIONS (11)
  - ANXIETY [None]
  - BALANCE DISORDER [None]
  - DIARRHOEA [None]
  - DRUG WITHDRAWAL SYNDROME [None]
  - DRY MOUTH [None]
  - HEADACHE [None]
  - INSOMNIA [None]
  - MUSCLE SPASMS [None]
  - PAIN [None]
  - SUICIDAL IDEATION [None]
  - VOMITING [None]
